FAERS Safety Report 18181388 (Version 1)
Quarter: 2020Q3

REPORT INFORMATION
  Report Type: Spontaneous
  Country: BE (occurrence: BE)
  Receive Date: 20200821
  Receipt Date: 20200821
  Transmission Date: 20201103
  Serious: Yes (Other)
  Sender: FDA-Public Use
  Company Number: BE-MICRO LABS LIMITED-ML2020-02432

PATIENT
  Age: 60 Year
  Sex: Female

DRUGS (6)
  1. BISOPROLOL [Suspect]
     Active Substance: BISOPROLOL
     Dosage: DOSE CHANGE FROM 2.5 MG TO 5 MG
  2. ACETYLSALICYLIC ACID [Suspect]
     Active Substance: ASPIRIN
  3. METFORMIN [Suspect]
     Active Substance: METFORMIN HYDROCHLORIDE
  4. ATORVASTATIN [Suspect]
     Active Substance: ATORVASTATIN
  5. BISOPROLOL [Suspect]
     Active Substance: BISOPROLOL
  6. GLIQUIDONE [Suspect]
     Active Substance: GLIQUIDONE

REACTIONS (1)
  - Electrocardiogram QT prolonged [Unknown]
